FAERS Safety Report 25714663 (Version 1)
Quarter: 2025Q3

REPORT INFORMATION
  Report Type: Spontaneous
  Country: US (occurrence: US)
  Receive Date: 20250822
  Receipt Date: 20250822
  Transmission Date: 20251020
  Serious: No
  Sender: FRESENIUS KABI
  Company Number: US-FreseniusKabi-FK202511164

PATIENT

DRUGS (2)
  1. FOLIC ACID [Suspect]
     Active Substance: FOLIC ACID
     Indication: Product used for unknown indication
     Route: 042
     Dates: start: 20250806
  2. DEXTROSE [Suspect]
     Active Substance: DEXTROSE MONOHYDRATE
     Indication: Product used for unknown indication
     Route: 042
     Dates: start: 20250806

REACTIONS (3)
  - Erythema [Unknown]
  - Feeling hot [Unknown]
  - Flushing [Unknown]

NARRATIVE: CASE EVENT DATE: 20250806
